FAERS Safety Report 4289604-7 (Version None)
Quarter: 2004Q1

REPORT INFORMATION
  Report Type: 
  Country: None (occurrence: None)
  Receive Date: 20040126
  Receipt Date: 20030120
  Transmission Date: 20041129
  Serious: Yes (Hospitalization)
  Sender: FDA-Public Use
  Company Number: 329952

PATIENT
  Age: 63 Year
  Sex: Male

DRUGS (3)
  1. TORADOL [Suspect]
     Indication: PAIN
     Dosage: INTRAMUSCULAR
     Route: 030
     Dates: start: 20020115, end: 20020115
  2. NA [Concomitant]
     Dosage: NA
  3. ANESTHESIA NOS (ANESTHETIC NOS) [Concomitant]

REACTIONS (11)
  - CHROMATURIA [None]
  - HEPATITIS [None]
  - INFLUENZA LIKE ILLNESS [None]
  - JAUNDICE [None]
  - LIVER FUNCTION TEST ABNORMAL [None]
  - NAUSEA [None]
  - PARAESTHESIA [None]
  - PRURITUS [None]
  - RASH [None]
  - SKIN ATROPHY [None]
  - SKIN ULCER [None]
